FAERS Safety Report 23595852 (Version 2)
Quarter: 2024Q2

REPORT INFORMATION
  Report Type: Spontaneous
  Country: US (occurrence: US)
  Receive Date: 20240305
  Receipt Date: 20240405
  Transmission Date: 20240715
  Serious: Yes (Other)
  Sender: FDA-Public Use
  Company Number: US-BIOVITRUM-2024-US-003402

PATIENT
  Age: 86 Year
  Sex: Male

DRUGS (1)
  1. DOPTELET [Suspect]
     Active Substance: AVATROMBOPAG MALEATE
     Indication: Immune thrombocytopenia
     Dosage: EVERY OTHER DAY
     Route: 048
     Dates: start: 20230525

REACTIONS (4)
  - Prostate cancer [Unknown]
  - Product dose omission issue [Unknown]
  - Product availability issue [Unknown]
  - Platelet count abnormal [Unknown]
